FAERS Safety Report 9762829 (Version 1)
Quarter: 2013Q4

REPORT INFORMATION
  Report Type: Report from Study
  Country: US (occurrence: US)
  Receive Date: 20131216
  Receipt Date: 20131216
  Transmission Date: 20140711
  Serious: Yes (Hospitalization)
  Sender: FDA-Public Use
  Company Number: US-ABBVIE-13P-163-1177756-00

PATIENT
  Age: 40 Year
  Sex: Female

DRUGS (12)
  1. HUMIRA [Suspect]
     Indication: CROHN^S DISEASE
     Dates: start: 2007
  2. HUMIRA [Suspect]
  3. FENTANYL [Suspect]
     Indication: PRODUCT USED FOR UNKNOWN INDICATION
  4. TRAZODONE [Concomitant]
     Indication: PRODUCT USED FOR UNKNOWN INDICATION
     Dosage: AT BEDTIME
  5. PROZAC [Concomitant]
     Indication: DEPRESSION
  6. TOPAMAX [Concomitant]
     Indication: MIGRAINE
     Dosage: ONCE AT BEDTIME
  7. ZOFRAN [Concomitant]
     Indication: NAUSEA
     Dosage: UP TO 3 TIMES DAILY AS NEEDED
  8. NEXIUM [Concomitant]
     Indication: GASTROOESOPHAGEAL REFLUX DISEASE
  9. BENTYL [Concomitant]
     Indication: PRODUCT USED FOR UNKNOWN INDICATION
     Dosage: UP TO FOUR TIMES DAILY
  10. RITALIN [Concomitant]
     Indication: ATTENTION DEFICIT/HYPERACTIVITY DISORDER
     Dosage: AS NEEDED
  11. KLONOPIN [Concomitant]
     Indication: POST-TRAUMATIC STRESS DISORDER
     Dosage: UP TO 3 DAILY, AS NEEDED
  12. LIALDA [Concomitant]
     Indication: PRODUCT USED FOR UNKNOWN INDICATION

REACTIONS (12)
  - Cardiac arrest [Unknown]
  - Diarrhoea [Unknown]
  - Vomiting [Unknown]
  - Clostridium difficile infection [Unknown]
  - Diarrhoea haemorrhagic [Unknown]
  - Haemorrhage [Unknown]
  - Anaemia [Unknown]
  - Frequent bowel movements [Unknown]
  - Overdose [Unknown]
  - Expired drug administered [Unknown]
  - Pain [Unknown]
  - Incision site haemorrhage [Unknown]
